FAERS Safety Report 10071982 (Version 2)
Quarter: 2014Q4

REPORT INFORMATION
  Report Type: Spontaneous
  Country: US (occurrence: None)
  Receive Date: 20140313
  Receipt Date: 20141008
  Transmission Date: 20150528
  Serious: Yes (Other)
  Sender: FDA-Public Use
  Company Number: ADR-2014-00294

PATIENT
  Sex: Female

DRUGS (7)
  1. PROPANOL [Suspect]
     Active Substance: PROPRANOLOL HYDROCHLORIDE
  2. BACLOFEN. [Suspect]
     Active Substance: BACLOFEN
     Indication: SPINAL PAIN
     Dates: end: 20140227
  3. DILAUDID [Suspect]
     Active Substance: HYDROMORPHONE HYDROCHLORIDE
  4. MICROZINE [Suspect]
     Active Substance: UNSPECIFIED INGREDIENT
  5. MECLIZINE [Suspect]
     Active Substance: MECLIZINE\MECLIZINE HYDROCHLORIDE
  6. MORPHINE INTRATHECAL [Suspect]
     Active Substance: MORPHINE
  7. DIAZEPAM. [Suspect]
     Active Substance: DIAZEPAM

REACTIONS (9)
  - No therapeutic response [None]
  - Device failure [None]
  - Device kink [None]
  - Haemoptysis [None]
  - Suture related complication [None]
  - Cough [None]
  - Pulmonary congestion [None]
  - Implant site pain [None]
  - Activities of daily living impaired [None]
